FAERS Safety Report 9586590 (Version 2)
Quarter: 2013Q4

REPORT INFORMATION
  Report Type: Report from Study
  Country: BR (occurrence: BR)
  Receive Date: 20131003
  Receipt Date: 20131101
  Transmission Date: 20140711
  Serious: Yes (Other)
  Sender: FDA-Public Use
  Company Number: BR-ROCHE-1284109

PATIENT
  Sex: Female
  Weight: 67 kg

DRUGS (8)
  1. XOLAIR [Suspect]
     Indication: ASTHMA
     Dosage: 1 OR 2 MONTHLY
     Route: 058
  2. XOLAIR [Suspect]
     Dosage: EVERY 15 DAYS
     Route: 065
  3. AEROLIN [Concomitant]
  4. FORASEQ [Concomitant]
     Dosage: 12/400 UG
     Route: 065
  5. ENALAPRIL [Concomitant]
     Route: 065
  6. HYDROCHLOROTHIAZIDE [Concomitant]
  7. LASIX [Concomitant]
     Route: 065
  8. OMEPRAZOLE [Concomitant]
     Route: 065

REACTIONS (2)
  - Diabetes mellitus [Recovering/Resolving]
  - Weight increased [Not Recovered/Not Resolved]
